FAERS Safety Report 9243267 (Version 1)
Quarter: 2013Q2

REPORT INFORMATION
  Report Type: Report from Study
  Country: US (occurrence: US)
  Receive Date: 20130419
  Receipt Date: 20130419
  Transmission Date: 20140414
  Serious: Yes (Hospitalization)
  Sender: FDA-Public Use
  Company Number: US-CELGENEUS-163-C4047-12063375

PATIENT
  Age: 69 Year
  Sex: Male
  Weight: 65.38 kg

DRUGS (20)
  1. CC-4047 [Suspect]
     Indication: PLASMA CELL MYELOMA
     Route: 048
     Dates: start: 20111210
  2. CC-4047 [Suspect]
     Route: 048
     Dates: start: 20120605, end: 20120622
  3. CC-4047 [Suspect]
     Route: 048
     Dates: start: 20120719
  4. DEXAMETHASONE [Suspect]
     Indication: PLASMA CELL MYELOMA
     Route: 065
     Dates: start: 20111210
  5. DEXAMETHASONE [Suspect]
     Route: 065
     Dates: start: 20120605, end: 20120622
  6. DEXAMETHASONE [Suspect]
     Route: 065
     Dates: start: 20120719
  7. LIPITOR [Concomitant]
     Indication: HYPERCHOLESTEROLAEMIA
     Dosage: 20 MILLIGRAM
     Route: 048
  8. MEGACE [Concomitant]
     Indication: INCREASED APPETITE
     Route: 065
  9. OXYCONTIN [Concomitant]
     Indication: PAIN
     Dosage: 120 MILLIGRAM
     Route: 065
  10. OXYCONTIN [Concomitant]
     Dosage: 120 MILLIGRAM
     Route: 048
  11. ATIVAN [Concomitant]
     Indication: SLEEP DISORDER
     Dosage: 1 MILLIGRAM
     Route: 048
  12. DILAUDID [Concomitant]
     Indication: PRODUCT USED FOR UNKNOWN INDICATION
     Dosage: 16 MILLIGRAM
     Route: 048
  13. LIDODERM [Concomitant]
     Indication: PRODUCT USED FOR UNKNOWN INDICATION
     Dosage: 1 PATCH
     Route: 062
  14. MIRALAX [Concomitant]
     Indication: PRODUCT USED FOR UNKNOWN INDICATION
     Route: 065
  15. SENOKOT [Concomitant]
     Indication: CONSTIPATION
     Dosage: 1 TAB
     Route: 048
  16. VALTREX [Concomitant]
     Indication: PROPHYLAXIS
     Route: 065
  17. SYNTHROID [Concomitant]
     Indication: HYPOTHYROIDISM
     Dosage: 50 MILLIGRAM
     Route: 048
  18. NYSTATIN [Concomitant]
     Indication: ANTIFUNGAL PROPHYLAXIS
     Dosage: 20 MILLILITER
     Route: 048
     Dates: start: 20120621, end: 20120626
  19. ASPIRIN [Concomitant]
     Indication: THROMBOSIS PROPHYLAXIS
     Dosage: 325 MILLIGRAM
     Route: 048
     Dates: start: 20120621, end: 20120626
  20. OXYCODONE [Concomitant]
     Indication: PAIN
     Route: 065

REACTIONS (1)
  - Pleural effusion [Recovered/Resolved]
